FAERS Safety Report 18569402 (Version 1)
Quarter: 2020Q4

REPORT INFORMATION
  Report Type: Spontaneous
  Country: VE (occurrence: VE)
  Receive Date: 20201123
  Receipt Date: 20201123
  Transmission Date: 20210114
  Serious: No
  Sender: FDA-Public Use
  Company Number: None

PATIENT
  Age: 46 Year
  Sex: Male
  Weight: 67 kg

DRUGS (2)
  1. CLORITO DE SODIO (SODIUM CHLORITE) [Suspect]
     Active Substance: SODIUM CHLORITE
     Indication: COVID-19 PROPHYLAXIS
     Route: 048
     Dates: start: 20201120, end: 20201120
  2. ACIDO CLOHIDRICO (HYDROCHLORIC ACID) [Suspect]
     Active Substance: HYDROCHLORIC ACID

REACTIONS (3)
  - Visual impairment [None]
  - Vomiting [None]
  - Nausea [None]

NARRATIVE: CASE EVENT DATE: 20201120
